FAERS Safety Report 19073305 (Version 1)
Quarter: 2021Q1

REPORT INFORMATION
  Report Type: Spontaneous
  Country: AR (occurrence: AR)
  Receive Date: 20210330
  Receipt Date: 20210330
  Transmission Date: 20210420
  Serious: Yes (Other)
  Sender: FDA-Public Use
  Company Number: AR-PFIZER INC-2020312844

PATIENT
  Age: 71 Year
  Sex: Male

DRUGS (3)
  1. SUTENT [Suspect]
     Active Substance: SUNITINIB MALATE
     Indication: METASTATIC RENAL CELL CARCINOMA
     Dosage: 50 MG, CYCLIC (2X2 SCHEME)
     Dates: start: 20200207
  2. SUTENT [Suspect]
     Active Substance: SUNITINIB MALATE
     Dosage: 12 MG
  3. SUTENT [Suspect]
     Active Substance: SUNITINIB MALATE
     Dosage: 25 MG, CYCLIC (2/1 SCHEME)
     Dates: start: 20200207

REACTIONS (10)
  - Incorrect dose administered [Unknown]
  - Blister [Unknown]
  - Thyroid hormones increased [Unknown]
  - Stomatitis [Unknown]
  - Oedema [Unknown]
  - Peripheral swelling [Unknown]
  - Diabetes mellitus [Unknown]
  - Fatigue [Unknown]
  - Ageusia [Unknown]
  - Thyroid hormones decreased [Unknown]

NARRATIVE: CASE EVENT DATE: 202006
